FAERS Safety Report 5352127-8 (Version None)
Quarter: 2007Q2

REPORT INFORMATION
  Report Type: 
  Country: None (occurrence: None)
  Receive Date: 20070611
  Receipt Date: 20070605
  Transmission Date: 20071010
  Serious: Yes (Other)
  Sender: FDA-Public Use
  Company Number: SE-JNJFOC-20050904823

PATIENT

DRUGS (3)
  1. INFLIXIMAB [Suspect]
     Indication: MYOSITIS
     Route: 042
  2. METHOTREXATE [Concomitant]
  3. AZATHIOPRINE [Concomitant]

REACTIONS (1)
  - NEOPLASM MALIGNANT [None]
